FAERS Safety Report 24331995 (Version 5)
Quarter: 2024Q4

REPORT INFORMATION
  Report Type: Spontaneous
  Country: CA (occurrence: CA)
  Receive Date: 20240918
  Receipt Date: 20241129
  Transmission Date: 20250114
  Serious: Yes (Other)
  Sender: ALEXION PHARMACEUTICALS
  Company Number: 2024A212918

PATIENT
  Age: 53 Year

DRUGS (98)
  1. OMEPRAZOLE [Suspect]
     Active Substance: OMEPRAZOLE
     Dosage: UNK
  2. OMEPRAZOLE [Suspect]
     Active Substance: OMEPRAZOLE
     Dosage: UNK
  3. OMEPRAZOLE [Suspect]
     Active Substance: OMEPRAZOLE
     Dosage: UNK
  4. OMEPRAZOLE [Suspect]
     Active Substance: OMEPRAZOLE
     Dosage: UNK
  5. CANDESARTAN CILEXETIL [Suspect]
     Active Substance: CANDESARTAN CILEXETIL
  6. CANDESARTAN CILEXETIL [Suspect]
     Active Substance: CANDESARTAN CILEXETIL
  7. CANDESARTAN CILEXETIL [Suspect]
     Active Substance: CANDESARTAN CILEXETIL
  8. CANDESARTAN CILEXETIL [Suspect]
     Active Substance: CANDESARTAN CILEXETIL
  9. AZD-1222 [Suspect]
     Active Substance: AZD-1222
     Route: 065
  10. AZD-1222 [Suspect]
     Active Substance: AZD-1222
  11. AZD-1222 [Suspect]
     Active Substance: AZD-1222
     Route: 065
  12. AZD-1222 [Suspect]
     Active Substance: AZD-1222
  13. DAPAGLIFLOZIN [Suspect]
     Active Substance: DAPAGLIFLOZIN
  14. DAPAGLIFLOZIN [Suspect]
     Active Substance: DAPAGLIFLOZIN
  15. DAPAGLIFLOZIN [Suspect]
     Active Substance: DAPAGLIFLOZIN
  16. DAPAGLIFLOZIN [Suspect]
     Active Substance: DAPAGLIFLOZIN
  17. ESOMEPRAZOLE [Suspect]
     Active Substance: ESOMEPRAZOLE
     Indication: Gastritis
     Route: 065
  18. ESOMEPRAZOLE [Suspect]
     Active Substance: ESOMEPRAZOLE
  19. ESOMEPRAZOLE [Suspect]
     Active Substance: ESOMEPRAZOLE
     Route: 065
  20. ESOMEPRAZOLE [Suspect]
     Active Substance: ESOMEPRAZOLE
  21. ROSUVASTATIN [Suspect]
     Active Substance: ROSUVASTATIN
     Indication: Ill-defined disorder
     Route: 065
  22. ROSUVASTATIN [Suspect]
     Active Substance: ROSUVASTATIN
     Indication: Product used for unknown indication
  23. ROSUVASTATIN [Suspect]
     Active Substance: ROSUVASTATIN
     Indication: Blood cholesterol increased
     Route: 065
  24. ROSUVASTATIN [Suspect]
     Active Substance: ROSUVASTATIN
  25. ADALIMUMAB [Suspect]
     Active Substance: ADALIMUMAB
  26. ADALIMUMAB [Suspect]
     Active Substance: ADALIMUMAB
     Route: 065
  27. ASPIRIN [Suspect]
     Active Substance: ASPIRIN
     Indication: Product used for unknown indication
  28. ASPIRIN [Suspect]
     Active Substance: ASPIRIN
     Route: 065
  29. EPINEPHRINE [Suspect]
     Active Substance: EPINEPHRINE
     Indication: Product used for unknown indication
  30. EPINEPHRINE [Suspect]
     Active Substance: EPINEPHRINE
     Route: 065
  31. ESCITALOPRAM [Suspect]
     Active Substance: ESCITALOPRAM OXALATE
     Indication: Product used for unknown indication
  32. ESCITALOPRAM [Suspect]
     Active Substance: ESCITALOPRAM OXALATE
     Route: 065
  33. FELODIPINE [Suspect]
     Active Substance: FELODIPINE
     Indication: Hypertension
     Route: 065
  34. FELODIPINE [Suspect]
     Active Substance: FELODIPINE
  35. FELODIPINE [Suspect]
     Active Substance: FELODIPINE
     Route: 065
  36. FELODIPINE [Suspect]
     Active Substance: FELODIPINE
  37. FUROSEMIDE [Suspect]
     Active Substance: FUROSEMIDE
     Indication: Product used for unknown indication
  38. FUROSEMIDE [Suspect]
     Active Substance: FUROSEMIDE
     Route: 065
  39. GABAPENTIN [Suspect]
     Active Substance: GABAPENTIN
     Indication: Product used for unknown indication
  40. GABAPENTIN [Suspect]
     Active Substance: GABAPENTIN
     Route: 065
  41. INFLIXIMAB [Suspect]
     Active Substance: INFLIXIMAB
     Indication: Crohn^s disease
  42. INFLIXIMAB [Suspect]
     Active Substance: INFLIXIMAB
     Indication: Product used for unknown indication
     Route: 065
  43. LEVOTHYROXINE SODIUM [Suspect]
     Active Substance: LEVOTHYROXINE SODIUM
  44. LEVOTHYROXINE SODIUM [Suspect]
     Active Substance: LEVOTHYROXINE SODIUM
     Route: 065
  45. LISDEXAMFETAMINE DIMESYLATE [Suspect]
     Active Substance: LISDEXAMFETAMINE DIMESYLATE
     Indication: Attention deficit hyperactivity disorder
  46. LISDEXAMFETAMINE DIMESYLATE [Suspect]
     Active Substance: LISDEXAMFETAMINE DIMESYLATE
     Route: 065
  47. MEBEVERINE HYDROCHLORIDE [Suspect]
     Active Substance: MEBEVERINE HYDROCHLORIDE
     Indication: Product used for unknown indication
  48. MEBEVERINE HYDROCHLORIDE [Suspect]
     Active Substance: MEBEVERINE HYDROCHLORIDE
     Route: 065
  49. METFORMIN [Suspect]
     Active Substance: METFORMIN HYDROCHLORIDE
     Indication: Product used for unknown indication
     Dosage: UNK
  50. METFORMIN [Suspect]
     Active Substance: METFORMIN HYDROCHLORIDE
     Dosage: UNK
     Route: 065
  51. OXYCODONE HYDROCHLORIDE [Suspect]
     Active Substance: OXYCODONE HYDROCHLORIDE
     Indication: Product used for unknown indication
  52. OXYCODONE HYDROCHLORIDE [Suspect]
     Active Substance: OXYCODONE HYDROCHLORIDE
     Route: 065
  53. PARA-AMINOSALICYLIC ACID [Suspect]
     Active Substance: AMINOSALICYLIC ACID
     Indication: Product used for unknown indication
  54. PARA-AMINOSALICYLIC ACID [Suspect]
     Active Substance: AMINOSALICYLIC ACID
     Route: 065
  55. TOZINAMERAN [Suspect]
     Active Substance: TOZINAMERAN
  56. TOZINAMERAN [Suspect]
     Active Substance: TOZINAMERAN
     Route: 065
  57. VITAMIN D3 [Suspect]
     Active Substance: CHOLECALCIFEROL
     Indication: Product used for unknown indication
  58. VITAMIN D3 [Suspect]
     Active Substance: CHOLECALCIFEROL
     Route: 065
  59. MESALAMINE [Suspect]
     Active Substance: MESALAMINE
     Indication: Product used for unknown indication
  60. MESALAMINE [Suspect]
     Active Substance: MESALAMINE
     Route: 065
  61. BUDESONIDE [Suspect]
     Active Substance: BUDESONIDE
     Indication: Product used for unknown indication
  62. BUDESONIDE [Suspect]
     Active Substance: BUDESONIDE
     Indication: Colitis ulcerative
  63. BUDESONIDE [Suspect]
     Active Substance: BUDESONIDE
  64. BUDESONIDE [Suspect]
     Active Substance: BUDESONIDE
  65. HYDROCORTISONE [Suspect]
     Active Substance: HYDROCORTISONE
  66. HYDROCORTISONE [Suspect]
     Active Substance: HYDROCORTISONE
     Route: 065
  67. ENTYVIO [Suspect]
     Active Substance: VEDOLIZUMAB
  68. ENTYVIO [Suspect]
     Active Substance: VEDOLIZUMAB
     Route: 065
  69. SULFASALAZINE [Suspect]
     Active Substance: SULFASALAZINE
     Indication: Product used for unknown indication
  70. SULFASALAZINE [Suspect]
     Active Substance: SULFASALAZINE
     Route: 065
  71. ACETAMINOPHEN [Concomitant]
     Active Substance: ACETAMINOPHEN
     Indication: Product used for unknown indication
  72. ACETAMINOPHEN [Concomitant]
     Active Substance: ACETAMINOPHEN
     Indication: Ill-defined disorder
     Route: 065
  73. ASACOL [Suspect]
     Active Substance: MESALAMINE
  74. ASACOL [Suspect]
     Active Substance: MESALAMINE
     Route: 065
  75. AMLODIPINE BESYLATE [Concomitant]
     Active Substance: AMLODIPINE BESYLATE
     Indication: Product used for unknown indication
  76. ATORVASTATIN CALCIUM [Concomitant]
     Active Substance: ATORVASTATIN CALCIUM
     Indication: Product used for unknown indication
  77. BETNOVATE [Concomitant]
     Active Substance: BETAMETHASONE
     Indication: Product used for unknown indication
  78. BISOPROLOL [Concomitant]
     Active Substance: BISOPROLOL
     Indication: Product used for unknown indication
  79. CALCIUM CARBONATE [Concomitant]
     Active Substance: CALCIUM CARBONATE
     Indication: Product used for unknown indication
  80. CALCIUM CARBONATE [Concomitant]
     Active Substance: CALCIUM CARBONATE
     Indication: Product used for unknown indication
  81. CALCIUM CARBONATE\CHOLECALCIFEROL [Concomitant]
     Active Substance: CALCIUM CARBONATE\CHOLECALCIFEROL
     Indication: Product used for unknown indication
  82. CITALOPRAM HYDROCHLORIDE [Concomitant]
     Active Substance: CITALOPRAM HYDROCHLORIDE
     Indication: Product used for unknown indication
  83. CLOBETASONE BUTYRATE [Concomitant]
     Active Substance: CLOBETASONE BUTYRATE
     Indication: Product used for unknown indication
  84. DORZOLAMIDE HYDROCHLORIDE [Concomitant]
     Active Substance: DORZOLAMIDE HYDROCHLORIDE
     Indication: Product used for unknown indication
  85. EMPAGLIFLOZIN [Concomitant]
     Active Substance: EMPAGLIFLOZIN
  86. FESOTERODINE FUMARATE [Concomitant]
     Active Substance: FESOTERODINE FUMARATE
  87. LANSOPRAZOLE [Concomitant]
     Active Substance: LANSOPRAZOLE
  88. LATANOPROST [Concomitant]
     Active Substance: LATANOPROST
  89. LYRICA [Concomitant]
     Active Substance: PREGABALIN
  90. POLYETHYLENE GLYCOL 3350 [Concomitant]
     Active Substance: POLYETHYLENE GLYCOL 3350
  91. NITROFURANTOIN [Concomitant]
     Active Substance: NITROFURANTOIN
  92. PARAFFIN [Concomitant]
     Active Substance: PARAFFIN
  93. PRAVASTATIN [Concomitant]
     Active Substance: PRAVASTATIN
  94. RAMIPRIL [Concomitant]
     Active Substance: RAMIPRIL
  95. RIVAROXABAN [Concomitant]
     Active Substance: RIVAROXABAN
  96. TAMSULOSIN HYDROCHLORIDE [Concomitant]
     Active Substance: TAMSULOSIN HYDROCHLORIDE
  97. TOFACITINIB CITRATE [Concomitant]
     Active Substance: TOFACITINIB CITRATE
  98. ALUMINUM HYDROXIDE [Concomitant]
     Active Substance: ALUMINUM HYDROXIDE

REACTIONS (50)
  - Abdominal discomfort [Not Recovered/Not Resolved]
  - Accidental overdose [Not Recovered/Not Resolved]
  - Arthritis [Not Recovered/Not Resolved]
  - Burns second degree [Not Recovered/Not Resolved]
  - Bronchiectasis [Not Recovered/Not Resolved]
  - COVID-19 [Not Recovered/Not Resolved]
  - Cardiac murmur [Not Recovered/Not Resolved]
  - Catarrh [Not Recovered/Not Resolved]
  - Cerebrovascular accident [Not Recovered/Not Resolved]
  - Colitis ulcerative [Not Recovered/Not Resolved]
  - Condition aggravated [Not Recovered/Not Resolved]
  - Confusional state [Not Recovered/Not Resolved]
  - Deep vein thrombosis [Not Recovered/Not Resolved]
  - Depression [Not Recovered/Not Resolved]
  - Dysgeusia [Not Recovered/Not Resolved]
  - Eczema [Not Recovered/Not Resolved]
  - Fatigue [Not Recovered/Not Resolved]
  - Frequent bowel movements [Not Recovered/Not Resolved]
  - Gingival pain [Not Recovered/Not Resolved]
  - Haematochezia [Not Recovered/Not Resolved]
  - Headache [Not Recovered/Not Resolved]
  - Hypopnoea [Not Recovered/Not Resolved]
  - Impaired work ability [Not Recovered/Not Resolved]
  - Inappropriate schedule of product administration [Not Recovered/Not Resolved]
  - Intentional product use issue [Not Recovered/Not Resolved]
  - Loss of personal independence in daily activities [Not Recovered/Not Resolved]
  - Medication error [Not Recovered/Not Resolved]
  - Migraine [Not Recovered/Not Resolved]
  - Nightmare [Not Recovered/Not Resolved]
  - Off label use [Not Recovered/Not Resolved]
  - Pain [Not Recovered/Not Resolved]
  - Pain in extremity [Not Recovered/Not Resolved]
  - Palpitations [Not Recovered/Not Resolved]
  - Parosmia [Not Recovered/Not Resolved]
  - Pulmonary embolism [Not Recovered/Not Resolved]
  - Pyrexia [Not Recovered/Not Resolved]
  - Rash [Not Recovered/Not Resolved]
  - Rectal haemorrhage [Not Recovered/Not Resolved]
  - Rhinitis [Not Recovered/Not Resolved]
  - Somnolence [Not Recovered/Not Resolved]
  - Stress [Not Recovered/Not Resolved]
  - Swollen tongue [Not Recovered/Not Resolved]
  - Systemic lupus erythematosus [Not Recovered/Not Resolved]
  - Tinnitus [Not Recovered/Not Resolved]
  - Tubulointerstitial nephritis [Not Recovered/Not Resolved]
  - Vertigo [Not Recovered/Not Resolved]
  - Weight decreased [Not Recovered/Not Resolved]
  - Impaired quality of life [Not Recovered/Not Resolved]
  - Drug ineffective [Not Recovered/Not Resolved]
  - Alcohol poisoning [Not Recovered/Not Resolved]
